FAERS Safety Report 8128848-0 (Version None)
Quarter: 2012Q1

REPORT INFORMATION
  Report Type: 
  Country: None (occurrence: None)
  Receive Date: 20120210
  Receipt Date: 20110503
  Transmission Date: 20120608
  Serious: No
  Sender: FDA-Public Use
  Company Number: US-BRISTOL-MYERS SQUIBB COMPANY-15645070

PATIENT
  Age: 63 Year
  Sex: Female
  Weight: 56 kg

DRUGS (8)
  1. SULFONAMIDE [Concomitant]
  2. SYNTHROID [Concomitant]
  3. ATENOLOL [Concomitant]
  4. CLONIDINE [Concomitant]
  5. COZAAR [Concomitant]
  6. ARAVA [Concomitant]
  7. ORENCIA [Suspect]
     Dates: end: 20101201
  8. PLAQUENIL [Concomitant]

REACTIONS (4)
  - ULCER [None]
  - TENDERNESS [None]
  - RASH [None]
  - JOINT SWELLING [None]
